FAERS Safety Report 5959698-9 (Version None)
Quarter: 2008Q4

REPORT INFORMATION
  Report Type: 
  Country: None (occurrence: None)
  Receive Date: 20081119
  Receipt Date: 20081119
  Transmission Date: 20090506
  Serious: No
  Sender: FDA-Public Use
  Company Number: None

PATIENT
  Age: 48 Year
  Sex: Female
  Weight: 70 kg

DRUGS (3)
  1. FUROSEMIDE [Suspect]
     Indication: PULMONARY OEDEMA
     Dosage: IVINF + BOLUS
     Route: 040
     Dates: start: 20080501, end: 20080605
  2. CHLOROTHIAZIDE [Concomitant]
  3. ASPIRIN [Concomitant]

REACTIONS (5)
  - ASPIRATION [None]
  - CARDIAC ARREST [None]
  - DEAFNESS [None]
  - ELECTROMECHANICAL DISSOCIATION [None]
  - FLUID OVERLOAD [None]
